FAERS Safety Report 4380156-X (Version None)
Quarter: 2004Q2

REPORT INFORMATION
  Report Type: 
  Country: None (occurrence: None)
  Receive Date: 20040614
  Receipt Date: 20040415
  Transmission Date: 20050107
  Serious: No
  Sender: FDA-Public Use
  Company Number: M04-341-118

PATIENT
  Age: 75 Year
  Sex: Female

DRUGS (1)
  1. VELCADE [Suspect]
     Indication: MULTIPLE MYELOMA
     Dosage: INTRAVENOUS BOLUS
     Route: 040
     Dates: start: 20040408, end: 20040412

REACTIONS (5)
  - DIARRHOEA [None]
  - HYPOAESTHESIA [None]
  - MUSCLE CRAMP [None]
  - PARAESTHESIA [None]
  - VOMITING [None]
